FAERS Safety Report 8120216-0 (Version None)
Quarter: 2012Q1

REPORT INFORMATION
  Report Type: 
  Country: None (occurrence: None)
  Receive Date: 20120207
  Receipt Date: 20120130
  Transmission Date: 20120608
  Serious: Yes (Hospitalization, Other)
  Sender: FDA-Public Use
  Company Number: FR-CELGENEUS-056-22393-12010026

PATIENT
  Sex: Male
  Weight: 60 kg

DRUGS (17)
  1. ONCOVIN [Concomitant]
     Dates: start: 20120112
  2. PREDNISONE [Concomitant]
     Indication: T-CELL LYMPHOMA
     Route: 065
     Dates: start: 20111222, end: 20111226
  3. ISTODAX [Suspect]
     Indication: T-CELL LYMPHOMA
     Dosage: 12 MILLIGRAM/SQ. METER
     Route: 065
     Dates: start: 20111222, end: 20111222
  4. CYCLOPHOSPHAMIDE [Concomitant]
     Indication: T-CELL LYMPHOMA
     Route: 065
     Dates: start: 20111222, end: 20111226
  5. CYCLOPHOSPHAMIDE [Concomitant]
     Route: 065
     Dates: start: 20120112
  6. FOLIC ACID [Concomitant]
     Route: 065
  7. VITAMIN B1B6 [Concomitant]
     Route: 065
  8. TRAMADOL HCL [Concomitant]
     Route: 065
  9. DOXORUBICIN HCL [Concomitant]
     Indication: T-CELL LYMPHOMA
     Route: 065
     Dates: start: 20111222, end: 20111226
  10. DOXORUBICIN HCL [Concomitant]
     Route: 065
     Dates: start: 20120112
  11. ENALAPRIL MALEATE [Concomitant]
     Indication: HYPERTENSION
     Route: 065
  12. ATORVASTATIN CALCIUM [Concomitant]
     Route: 065
  13. LERCANIDIPINE [Concomitant]
     Indication: HYPERTENSION
     Route: 065
  14. PREDNISONE [Concomitant]
     Route: 065
     Dates: start: 20120112
  15. OMEPRAZOLE [Concomitant]
     Route: 065
  16. ONCOVIN [Concomitant]
     Indication: T-CELL LYMPHOMA
     Route: 065
     Dates: start: 20111222, end: 20111226
  17. APREPITANT [Concomitant]
     Route: 065

REACTIONS (1)
  - PULMONARY OEDEMA [None]
